FAERS Safety Report 9822085 (Version 1)
Quarter: 2014Q1

REPORT INFORMATION
  Report Type: Spontaneous
  Country: FR (occurrence: None)
  Receive Date: 20140115
  Receipt Date: 20140115
  Transmission Date: 20141002
  Serious: Yes (Other)
  Sender: FDA-Public Use
  Company Number: AXC-2014-000028

PATIENT
  Age: 62 Year
  Sex: Female

DRUGS (2)
  1. PYLERA [Suspect]
     Indication: GASTRITIS
     Dosage: 3 DF
     Route: 048
     Dates: start: 20130709, end: 20130711
  2. ALEPSAL (ATROPA BELLADONNA EXTRACT, CAFFEINE, PHENOBARBITAL) [Concomitant]

REACTIONS (5)
  - Headache [None]
  - Hypertension [None]
  - Vomiting [None]
  - Musculoskeletal stiffness [None]
  - Malaise [None]
